FAERS Safety Report 9524436 (Version 1)
Quarter: 2013Q1

REPORT INFORMATION
  Report Type: Spontaneous
  Country: US (occurrence: None)
  Receive Date: 20130313
  Receipt Date: 20130313
  Transmission Date: 20140127
  Serious: No
  Sender: FDA-Public Use
  Company Number: 1000031131

PATIENT
  Age: 62 Year
  Sex: Male

DRUGS (9)
  1. SAVELLA (MILNACIPRAN HYDROCHLORIDE) (12.5 MILLIGRAM, TABLETS) [Suspect]
     Indication: NEUROPATHY PERIPHERAL
     Dosage: 12.5 MG (12.5 MG, 1 IN 1 D), ORAL
     Route: 048
     Dates: start: 20120530, end: 20120530
  2. XENICAL (ORLISTAT) [Concomitant]
  3. POTASSIUM [Concomitant]
  4. ENALAPRIL [Concomitant]
  5. TRICOR (FENOFIBRATE) [Concomitant]
  6. LOVASTATIN [Concomitant]
  7. METFORMIN [Concomitant]
  8. ADDERALL (OBETROL) [Concomitant]
  9. LYRICA (PREGABALIN) [Concomitant]

REACTIONS (3)
  - Hyperhidrosis [None]
  - Hot flush [None]
  - Off label use [None]
